FAERS Safety Report 4802261-3 (Version None)
Quarter: 2005Q4

REPORT INFORMATION
  Report Type: 
  Country: None (occurrence: None)
  Receive Date: 20051012
  Receipt Date: 20050928
  Transmission Date: 20060501
  Serious: Yes (Hospitalization)
  Sender: FDA-Public Use
  Company Number: 2005BI018158

PATIENT
  Age: 58 Year
  Sex: Female
  Weight: 67.1324 kg

DRUGS (8)
  1. AVONEX [Suspect]
     Indication: MULTIPLE SCLEROSIS
     Dosage: 30 UG; QW; IM
     Route: 030
     Dates: start: 20020101, end: 20040101
  2. AVONEX [Suspect]
     Indication: MULTIPLE SCLEROSIS
     Dosage: 30 UG; QW; IM
     Route: 030
     Dates: start: 20050501
  3. LASIX [Concomitant]
  4. IBUPROFEN [Concomitant]
  5. NORVASC [Concomitant]
  6. FLONASE [Concomitant]
  7. ALLEGRA [Concomitant]
  8. ACTONEL [Concomitant]

REACTIONS (2)
  - PAIN [None]
  - THROMBOSIS [None]
